FAERS Safety Report 9486143 (Version 1)
Quarter: 2013Q3

REPORT INFORMATION
  Report Type: Spontaneous
  Country: US (occurrence: US)
  Receive Date: 20130829
  Receipt Date: 20130829
  Transmission Date: 20140515
  Serious: No
  Sender: FDA-Public Use
  Company Number: US-BAYER-2013-104194

PATIENT
  Age: 82 Year
  Sex: Female
  Weight: 63 kg

DRUGS (12)
  1. ALEVE TABLET [Suspect]
     Indication: ARTHRITIS
     Dosage: 2 DF, QD
     Route: 048
     Dates: start: 2011
  2. ALEVE TABLET [Suspect]
     Indication: ARTHRITIS
     Dosage: 4 DF, ONCE
     Dates: start: 20130823, end: 20130823
  3. CITRACAL CALCIUM + D SLOW RELEASE 1200 [Concomitant]
     Indication: VITAMIN SUPPLEMENTATION
     Dosage: 1 DF, QD
     Route: 048
  4. NEXIUM [Concomitant]
  5. SYNTHROID [Concomitant]
  6. LISINOPRIL [Concomitant]
  7. HYDROCHLOROTHIAZIDE [Concomitant]
  8. DILTIAZEM [Concomitant]
  9. TIAZAC [Concomitant]
  10. METOPROLOL [Concomitant]
  11. DIGOXIN [Concomitant]
  12. ZYRTEC [Concomitant]

REACTIONS (2)
  - Extra dose administered [None]
  - Incorrect drug administration duration [None]
